FAERS Safety Report 5571278-6 (Version None)
Quarter: 2007Q4

REPORT INFORMATION
  Report Type: 
  Country: None (occurrence: None)
  Receive Date: 20071221
  Receipt Date: 20070515
  Transmission Date: 20080405
  Serious: No
  Sender: FDA-Public Use
  Company Number: A0647815A

PATIENT
  Age: 45 Year
  Sex: Female

DRUGS (2)
  1. FLUTICASONE PROPIONATE [Suspect]
     Dosage: 1SPR PER DAY
     Route: 045
     Dates: start: 20060601, end: 20060801
  2. UNKNOWN MEDICATION [Concomitant]

REACTIONS (1)
  - HEADACHE [None]
